FAERS Safety Report 5176841-2 (Version None)
Quarter: 2006Q4

REPORT INFORMATION
  Report Type: 
  Country: None (occurrence: None)
  Receive Date: 20061218
  Receipt Date: 20061213
  Transmission Date: 20070319
  Serious: Yes (Hospitalization, Other)
  Sender: FDA-Public Use
  Company Number: GB-AVENTIS-200622601GDDC

PATIENT
  Sex: Female

DRUGS (2)
  1. MINIRIN [Suspect]
     Indication: ENURESIS
     Route: 048
     Dates: start: 20060116
  2. OVRANETTE [Suspect]
     Indication: CONTRACEPTION
     Route: 048
     Dates: start: 20040216, end: 20061010

REACTIONS (4)
  - DRUG EXPOSURE DURING PREGNANCY [None]
  - DRUG INEFFECTIVE [None]
  - DRUG INTERACTION [None]
  - PREGNANCY ON ORAL CONTRACEPTIVE [None]
